FAERS Safety Report 14108768 (Version 2)
Quarter: 2018Q2

REPORT INFORMATION
  Report Type: Not Available
  Country: US (occurrence: US)
  Receive Date: 20171019
  Receipt Date: 20180418
  Transmission Date: 20180711
  Serious: No
  Sender: FDA-Public Use
  Company Number: US-NEUROCRINE BIOSCIENCES INC.-2017NBI00770

PATIENT
  Age: 31 Year
  Sex: Male

DRUGS (6)
  1. INGREZZA [Suspect]
     Active Substance: VALBENAZINE
     Indication: TARDIVE DYSKINESIA
     Route: 048
     Dates: start: 20170601
  2. KLONOPIN [Concomitant]
     Active Substance: CLONAZEPAM
  3. SERTRALINE [Concomitant]
     Active Substance: SERTRALINE HYDROCHLORIDE
  4. INGREZZA [Suspect]
     Active Substance: VALBENAZINE
     Indication: TOURETTE^S DISORDER
     Route: 048
     Dates: end: 20170803
  5. BACLOFEN. [Concomitant]
     Active Substance: BACLOFEN
  6. CLONIDINE. [Concomitant]
     Active Substance: CLONIDINE

REACTIONS (4)
  - Apathy [Unknown]
  - Depression [Recovered/Resolved]
  - Drug ineffective [None]
  - Somnolence [Recovered/Resolved]

NARRATIVE: CASE EVENT DATE: 201707
